FAERS Safety Report 6266198-8 (Version None)
Quarter: 2009Q3

REPORT INFORMATION
  Report Type: 
  Country: None (occurrence: None)
  Receive Date: 20090713
  Receipt Date: 20090611
  Transmission Date: 20100115
  Serious: No
  Sender: FDA-Public Use
  Company Number: US-BAYER-200911795BCC

PATIENT
  Age: 38 Year
  Sex: Female
  Weight: 68 kg

DRUGS (1)
  1. ALEVE [Suspect]
     Indication: DRUG USE FOR UNKNOWN INDICATION
     Dosage: TOTAL DAILY DOSE: 660 MG  UNIT DOSE: 220 MG
     Route: 048
     Dates: start: 20090610, end: 20090610

REACTIONS (3)
  - HYPERSENSITIVITY [None]
  - PRURITUS GENERALISED [None]
  - SWELLING [None]
